FAERS Safety Report 18179378 (Version 2)
Quarter: 2021Q1

REPORT INFORMATION
  Report Type: Report from Study
  Country: None (occurrence: CO)
  Receive Date: 20200821
  Receipt Date: 20210122
  Transmission Date: 20210419
  Serious: Yes (Hospitalization, Other)
  Sender: FDA-Public Use
  Company Number: CO-ABBVIE-20K-036-3534687-00

PATIENT
  Sex: Female
  Weight: 65 kg

DRUGS (1)
  1. HUMIRA [Suspect]
     Active Substance: ADALIMUMAB
     Indication: RHEUMATOID ARTHRITIS
     Route: 058
     Dates: start: 20190530, end: 20200505

REACTIONS (10)
  - Tuberculin test positive [Recovering/Resolving]
  - COVID-19 [Recovering/Resolving]
  - Feeling abnormal [Recovering/Resolving]
  - Nasal injury [Recovering/Resolving]
  - Tuberculosis [Recovering/Resolving]
  - Pneumonia [Recovering/Resolving]
  - Influenza like illness [Recovering/Resolving]
  - Rhinorrhoea [Recovering/Resolving]
  - Bronchitis [Recovering/Resolving]
  - Nasal congestion [Recovering/Resolving]

NARRATIVE: CASE EVENT DATE: 2020
